FAERS Safety Report 25080234 (Version 1)
Quarter: 2025Q1

REPORT INFORMATION
  Report Type: Spontaneous
  Country: US (occurrence: US)
  Receive Date: 20250314
  Receipt Date: 20250314
  Transmission Date: 20250408
  Serious: No
  Sender: MERCK SHARP & DOHME LLC
  Company Number: US-009507513-2257686

PATIENT
  Age: 45 Year
  Sex: Female
  Weight: 80.7 kg

DRUGS (28)
  1. SOTATERCEPT [Suspect]
     Active Substance: SOTATERCEPT
     Route: 058
     Dates: start: 202502
  2. SOTATERCEPT [Suspect]
     Active Substance: SOTATERCEPT
  3. SOTATERCEPT [Suspect]
     Active Substance: SOTATERCEPT
  4. SOTATERCEPT [Suspect]
     Active Substance: SOTATERCEPT
  5. REMODULIN [Suspect]
     Active Substance: TREPROSTINIL
     Route: 058
     Dates: start: 20241008
  6. METOPROLOL TARTRATE [Concomitant]
     Active Substance: METOPROLOL TARTRATE
     Route: 065
  7. TYLENOL [Concomitant]
     Active Substance: ACETAMINOPHEN
     Route: 065
  8. MEDROXYPROGESTERONE ACETATE [Concomitant]
     Active Substance: MEDROXYPROGESTERONE ACETATE
     Route: 065
  9. Aminofen [Concomitant]
     Route: 065
  10. VITAMIN D2 [Concomitant]
     Active Substance: ERGOCALCIFEROL
     Route: 065
  11. LECITHIN [Concomitant]
     Active Substance: LECITHIN
     Route: 065
  12. ALBUTEROL SULFATE [Concomitant]
     Active Substance: ALBUTEROL SULFATE
     Route: 065
  13. KETAMINE HYDROCHLORIDE [Concomitant]
     Active Substance: KETAMINE HYDROCHLORIDE
     Route: 065
  14. MAGNESIUM [Concomitant]
     Active Substance: MAGNESIUM
     Route: 065
  15. CLONIDINE [Concomitant]
     Active Substance: CLONIDINE
     Route: 065
  16. KETOPROFEN [Concomitant]
     Active Substance: KETOPROFEN
     Route: 065
  17. OXYGEN [Concomitant]
     Active Substance: OXYGEN
     Route: 065
  18. SPIRONOLACTONE [Concomitant]
     Active Substance: SPIRONOLACTONE
     Route: 065
  19. REVATIO [Concomitant]
     Active Substance: SILDENAFIL CITRATE
     Route: 065
  20. AMIODARONE HYDROCHLORIDE [Concomitant]
     Active Substance: AMIODARONE HYDROCHLORIDE
     Route: 065
  21. LIDOCAINE HYDROCHLORIDE [Concomitant]
     Active Substance: LIDOCAINE HYDROCHLORIDE
     Route: 065
  22. FUROSEMIDE [Concomitant]
     Active Substance: FUROSEMIDE
     Route: 065
  23. AMITRIPTYLINE HYDROCHLORIDE [Concomitant]
     Active Substance: AMITRIPTYLINE HYDROCHLORIDE
     Route: 065
  24. GABAPENTIN [Concomitant]
     Active Substance: GABAPENTIN
     Route: 065
  25. POLOXAMER [Concomitant]
     Active Substance: POLOXAMER
     Route: 065
  26. ZOFRAN [Concomitant]
     Active Substance: ONDANSETRON HYDROCHLORIDE
     Route: 065
  27. LOPERAMIDE [Concomitant]
     Active Substance: LOPERAMIDE
     Route: 065
  28. POTASSIUM CHLORIDE [Concomitant]
     Active Substance: POTASSIUM CHLORIDE
     Route: 065

REACTIONS (1)
  - Haemoglobin increased [Unknown]

NARRATIVE: CASE EVENT DATE: 20250213
